FAERS Safety Report 7023380-X (Version None)
Quarter: 2010Q3

REPORT INFORMATION
  Report Type: 
  Country: None (occurrence: None)
  Receive Date: 20100930
  Receipt Date: 20100920
  Transmission Date: 20110219
  Serious: Yes (Hospitalization, Other)
  Sender: FDA-Public Use
  Company Number: US-ELI_LILLY_AND_COMPANY-US201009006242

PATIENT
  Sex: Male

DRUGS (4)
  1. FORTEO [Suspect]
     Dosage: 20 UG, DAILY (1/D)
     Dates: start: 20090429
  2. FLOMAX [Concomitant]
     Dosage: UNK, DAILY (1/D)
  3. COUMADIN [Concomitant]
     Dosage: 4 MG, QOD
  4. COUMADIN [Concomitant]
     Dosage: 2 MG, QOD

REACTIONS (3)
  - HYPOACUSIS [None]
  - OFF LABEL USE [None]
  - THROMBOSIS [None]
